FAERS Safety Report 9050329 (Version 1)
Quarter: 2013Q1

REPORT INFORMATION
  Report Type: Spontaneous
  Country: JP (occurrence: JP)
  Receive Date: 20130205
  Receipt Date: 20130205
  Transmission Date: 20140127
  Serious: Yes (Other)
  Sender: FDA-Public Use
  Company Number: JP-NAPPMUNDI-GBR-2013-0013117

PATIENT
  Sex: Female

DRUGS (7)
  1. BUPRENORPHINE TRANSDERMAL SYSTEM [Suspect]
     Indication: OSTEOARTHRITIS
     Dosage: 10 MCG, Q1H
     Route: 062
     Dates: start: 20130123, end: 20130124
  2. BUPRENORPHINE TRANSDERMAL SYSTEM [Suspect]
     Dosage: 5 MCG, Q1H
     Route: 062
  3. CANDESARTAN CILEXETIL W/HYDROCHLOROTHIAZIDE [Concomitant]
     Dosage: UNK
     Route: 048
  4. BLOPRESS [Concomitant]
     Dosage: 4 MG, UNK
     Route: 048
  5. PURSENNID /00142207/ [Concomitant]
     Route: 048
  6. TAKEPRON [Concomitant]
     Dosage: 15 MG, UNK
     Route: 065
  7. EXCELASE [Concomitant]
     Route: 048

REACTIONS (1)
  - Blood pressure decreased [Recovered/Resolved]
